FAERS Safety Report 7335246-6 (Version None)
Quarter: 2011Q1

REPORT INFORMATION
  Report Type: 
  Country: None (occurrence: None)
  Receive Date: 20110307
  Receipt Date: 20110301
  Transmission Date: 20110831
  Serious: No
  Sender: FDA-Public Use
  Company Number: US-PFIZER INC-2011045337

PATIENT
  Sex: Female
  Weight: 73.016 kg

DRUGS (5)
  1. ZYRTEC [Concomitant]
     Indication: HYPERSENSITIVITY
     Dosage: 10 MG, UNK
  2. LEVOTHYROXINE [Concomitant]
     Indication: THYROID DISORDER
     Dosage: UNK
  3. PRISTIQ [Suspect]
     Indication: DEPRESSION
     Dosage: 50 MG, 1X/DAY
     Route: 048
     Dates: start: 20101201
  4. PRISTIQ [Suspect]
     Indication: SEASONAL AFFECTIVE DISORDER
  5. VITAMIN D [Concomitant]
     Dosage: 2000 IU, 1X/DAY

REACTIONS (3)
  - FEELING JITTERY [None]
  - FEAR [None]
  - BLOOD PRESSURE INCREASED [None]
